FAERS Safety Report 8267735-4 (Version None)
Quarter: 2012Q2

REPORT INFORMATION
  Report Type: 
  Country: None (occurrence: None)
  Receive Date: 20120404
  Receipt Date: 20120321
  Transmission Date: 20120825
  Serious: Yes (Hospitalization, Other)
  Sender: FDA-Public Use
  Company Number: JP-2012-10235

PATIENT
  Age: 62 Year
  Sex: Male

DRUGS (28)
  1. SAMSCA [Suspect]
     Indication: CARDIAC FAILURE
     Dosage: 7.5 MG MILLIGRAM(S), QAM (AT AROUND 0730), ORAL, 15 MG (MILLIGRAM(S), QAM AT AROUND 0730), ORAL
     Route: 048
     Dates: start: 20111230, end: 20120106
  2. SAMSCA [Suspect]
     Indication: CARDIAC FAILURE
     Dosage: 7.5 MG MILLIGRAM(S), QAM (AT AROUND 0730), ORAL, 15 MG (MILLIGRAM(S), QAM AT AROUND 0730), ORAL
     Route: 048
     Dates: start: 20111222, end: 20111229
  3. LASIX [Concomitant]
  4. LIVALO [Concomitant]
  5. MAGMITT (MAGNESIUM OXIDE) [Concomitant]
  6. ALDACTONE [Concomitant]
  7. DOBUTREX [Concomitant]
  8. VITAJECT (MULTIPLE VITAMIN FOR TOTAL PARENTERAL NUTRITION) [Concomitant]
  9. MILRILA (MILRINONE) [Concomitant]
  10. ASPIRIN [Concomitant]
  11. BIOFERMIN (LACTOMIN) [Concomitant]
  12. VOLVIX (MANGANESE CHLORIDE_ZINC SULFATE HYDRATE COMBINED DRUG) [Concomitant]
  13. SOLDEM 6 (POSTOPERATIVE RECOVERY MEDIUM) [Concomitant]
  14. DEXTROSE 5% [Concomitant]
  15. KAKODIN (DOPAMINE HYDROCHLORIDE) [Concomitant]
  16. PERINDOPRIL ERBUMINE [Concomitant]
  17. PLAVIX [Concomitant]
  18. INTRALIPOS (GLYCINE MAX SEED OIL) [Concomitant]
  19. ARTISI (CARVEDILOL) [Concomitant]
  20. AMIODARONE HCL [Concomitant]
  21. ZETIA [Concomitant]
  22. BISOPROLOL FUMARATE [Concomitant]
  23. HEPARIN NA LOCK (HEPARIN SODIUM) [Concomitant]
  24. DOBUPUM (DOBUTAMINE HYDROCHLORIDE) [Concomitant]
  25. FAMOTIDINE [Concomitant]
  26. ARGAMATE (CALCIUM POLYSTYRENE SULFONATE) [Concomitant]
  27. LANSOPRAZOLE [Concomitant]
  28. NOVO HEPARIN (HEPARIN SODIUM) [Concomitant]

REACTIONS (10)
  - BLOOD POTASSIUM INCREASED [None]
  - ASPARTATE AMINOTRANSFERASE INCREASED [None]
  - BLOOD ALKALINE PHOSPHATASE INCREASED [None]
  - BLOOD LACTATE DEHYDROGENASE INCREASED [None]
  - PLATELET COUNT DECREASED [None]
  - BLOOD BILIRUBIN INCREASED [None]
  - ALANINE AMINOTRANSFERASE INCREASED [None]
  - CARDIAC FAILURE CONGESTIVE [None]
  - HYPERNATRAEMIA [None]
  - GAMMA-GLUTAMYLTRANSFERASE INCREASED [None]
